FAERS Safety Report 17244505 (Version 4)
Quarter: 2020Q2

REPORT INFORMATION
  Report Type: Spontaneous
  Country: US (occurrence: US)
  Receive Date: 20200107
  Receipt Date: 20200527
  Transmission Date: 20200713
  Serious: Yes (Hospitalization, Other)
  Sender: FDA-Public Use
  Company Number: US-GILEAD-2020-0445103

PATIENT
  Age: 43 Year
  Sex: Male
  Weight: 97.05 kg

DRUGS (44)
  1. COMPLERA [Suspect]
     Active Substance: EMTRICITABINE\RILPIVIRINE HYDROCHLORIDE\TENOFOVIR DISOPROXIL FUMARATE
     Indication: HIV INFECTION
     Dosage: UNK
     Route: 048
     Dates: start: 2001, end: 2013
  2. HUMALOG [Concomitant]
     Active Substance: INSULIN LISPRO
  3. ISENTRESS [Concomitant]
     Active Substance: RALTEGRAVIR POTASSIUM
  4. PORCINE-FASTACT [Concomitant]
  5. KLONOPIN [Concomitant]
     Active Substance: CLONAZEPAM
  6. TYLENOL [Concomitant]
     Active Substance: ACETAMINOPHEN
  7. KALETRA [Concomitant]
     Active Substance: LOPINAVIR\RITONAVIR
  8. METOPROLOL [METOPROLOL SUCCINATE] [Concomitant]
  9. LOVAZA [Concomitant]
     Active Substance: OMEGA-3-ACID ETHYL ESTERS
  10. LISINOPRIL. [Concomitant]
     Active Substance: LISINOPRIL
  11. LANTUS [Concomitant]
     Active Substance: INSULIN GLARGINE
  12. CRESTOR [Concomitant]
     Active Substance: ROSUVASTATIN CALCIUM
  13. PEPCID [Concomitant]
     Active Substance: FAMOTIDINE
  14. ALLOPURINOL. [Concomitant]
     Active Substance: ALLOPURINOL
  15. ONDANSETRON [Concomitant]
     Active Substance: ONDANSETRON
  16. NORCO [Concomitant]
     Active Substance: ACETAMINOPHEN\HYDROCODONE BITARTRATE
  17. DILAUDID [Concomitant]
     Active Substance: HYDROMORPHONE HYDROCHLORIDE
  18. NORVASC [Concomitant]
     Active Substance: AMLODIPINE BESYLATE
  19. ARANESP [Concomitant]
     Active Substance: DARBEPOETIN ALFA
  20. LAMIVUDINE. [Concomitant]
     Active Substance: LAMIVUDINE
  21. NEVIRAPINE. [Concomitant]
     Active Substance: NEVIRAPINE
  22. BENZONATATE. [Concomitant]
     Active Substance: BENZONATATE
  23. GEMFIBROZIL. [Concomitant]
     Active Substance: GEMFIBROZIL
  24. JULUCA [Concomitant]
     Active Substance: DOLUTEGRAVIR SODIUM\RILPIVIRINE HYDROCHLORIDE
  25. TESTOSTERONE. [Concomitant]
     Active Substance: TESTOSTERONE
  26. VIREAD [Suspect]
     Active Substance: TENOFOVIR DISOPROXIL FUMARATE
     Indication: HIV INFECTION
     Dosage: UNK
     Route: 048
     Dates: start: 200205, end: 2013
  27. VIRACEPT [Concomitant]
     Active Substance: NELFINAVIR MESYLATE
  28. METHYLPREDNISOLONE. [Concomitant]
     Active Substance: METHYLPREDNISOLONE
  29. OXYCODONE AND ACETAMINOPHEN [Concomitant]
     Active Substance: ACETAMINOPHEN\OXYCODONE HYDROCHLORIDE
  30. DIALYVITE [Concomitant]
     Active Substance: ASCORBIC ACID\BIOTIN\CALCIUM PANTOTHENATE\COBALAMIN\FOLIC ACID\NIACINAMIDE\PYRIDOXINE HYDROCHLORIDE\RIBOFLAVIN\THIAMINE MONONITRATE
  31. RENAGEL [Concomitant]
     Active Substance: SEVELAMER HYDROCHLORIDE
  32. RENVELA [Concomitant]
     Active Substance: SEVELAMER CARBONATE
  33. LEVEMIR [Concomitant]
     Active Substance: INSULIN DETEMIR
  34. NOVOLOG [Concomitant]
     Active Substance: INSULIN ASPART
  35. GLIMEPIRIDE. [Concomitant]
     Active Substance: GLIMEPIRIDE
  36. LIDOCAINE AND PRILOCAINE [Concomitant]
     Active Substance: LIDOCAINE\PRILOCAINE
  37. EPIVIR [Concomitant]
     Active Substance: LAMIVUDINE
  38. HYDROXYZINE [Concomitant]
     Active Substance: HYDROXYZINE HYDROCHLORIDE
  39. AZITHROMYCIN ANHYDROUS. [Concomitant]
     Active Substance: AZITHROMYCIN ANHYDROUS
  40. VASCEPA [Concomitant]
     Active Substance: ICOSAPENT ETHYL
  41. AMLODIPINE [Concomitant]
     Active Substance: AMLODIPINE BESYLATE
  42. VIRAMUNE [Concomitant]
     Active Substance: NEVIRAPINE
  43. PHENERGAN [Concomitant]
     Active Substance: PROMETHAZINE HYDROCHLORIDE
  44. PREDNISONE. [Concomitant]
     Active Substance: PREDNISONE

REACTIONS (18)
  - Renal failure [Not Recovered/Not Resolved]
  - Hyperkalaemia [Not Recovered/Not Resolved]
  - Hyperparathyroidism secondary [Not Recovered/Not Resolved]
  - Azotaemia [Not Recovered/Not Resolved]
  - End stage renal disease [Not Recovered/Not Resolved]
  - Nephrolithiasis [Not Recovered/Not Resolved]
  - Tooth loss [Unknown]
  - Emotional distress [Not Recovered/Not Resolved]
  - Acute kidney injury [Not Recovered/Not Resolved]
  - Economic problem [Not Recovered/Not Resolved]
  - Pain [Not Recovered/Not Resolved]
  - Renal impairment [Unknown]
  - Anxiety [Unknown]
  - Metabolic acidosis [Not Recovered/Not Resolved]
  - Renal transplant [Unknown]
  - Renal failure [Not Recovered/Not Resolved]
  - Diabetes mellitus [Not Recovered/Not Resolved]
  - Anhedonia [Unknown]

NARRATIVE: CASE EVENT DATE: 20041025
